FAERS Safety Report 5146817-X (Version None)
Quarter: 2006Q4

REPORT INFORMATION
  Report Type: 
  Country: None (occurrence: None)
  Receive Date: 20061107
  Receipt Date: 20061107
  Transmission Date: 20070319
  Serious: Yes (Hospitalization)
  Sender: FDA-Public Use
  Company Number: None

PATIENT
  Age: 62 Year
  Sex: Female
  Weight: 65.77 kg

DRUGS (2)
  1. LOVENOX [Suspect]
     Indication: THROMBOSIS PROPHYLAXIS
     Dosage: 40MG 1 DAILY/SUBCUTANEOUS
     Route: 058
     Dates: start: 20060527, end: 20061026
  2. THORACENTESIS [Concomitant]

REACTIONS (2)
  - HAEMOTHORAX [None]
  - MALIGNANT PLEURAL EFFUSION [None]
